FAERS Safety Report 7979030-9 (Version None)
Quarter: 2011Q4

REPORT INFORMATION
  Report Type: 
  Country: None (occurrence: None)
  Receive Date: 20111214
  Receipt Date: 20111213
  Transmission Date: 20120403
  Serious: No
  Sender: FDA-Public Use
  Company Number: US-PFIZER INC-2011303649

PATIENT
  Sex: Male
  Weight: 40 kg

DRUGS (2)
  1. GENOTROPIN [Suspect]
     Dosage: 1.8 MG, 1X/DAY
     Route: 058
     Dates: start: 20110726
  2. ANASTROZOLE [Concomitant]
     Dosage: UNK

REACTIONS (4)
  - BONE DISORDER [None]
  - MOOD SWINGS [None]
  - ARTHRALGIA [None]
  - MOOD ALTERED [None]
